FAERS Safety Report 17836410 (Version 2)
Quarter: 2025Q3

REPORT INFORMATION
  Report Type: Spontaneous
  Country: US (occurrence: US)
  Receive Date: 20200529
  Receipt Date: 20250703
  Transmission Date: 20251020
  Serious: Yes (Life-Threatening, Hospitalization, Other)
  Sender: AUROBINDO
  Company Number: US-MLMSERVICE-20200508-2294992-1

PATIENT
  Age: 38 Year
  Sex: Female

DRUGS (3)
  1. RISPERIDONE [Suspect]
     Active Substance: RISPERIDONE
     Indication: Schizophrenia
  2. RISPERIDONE [Suspect]
     Active Substance: RISPERIDONE
     Indication: Bipolar disorder
  3. NAPROXEN [Concomitant]
     Active Substance: NAPROXEN
     Indication: Product used for unknown indication

REACTIONS (8)
  - Cardiac ventricular thrombosis [Not Recovered/Not Resolved]
  - Hypereosinophilic syndrome [Recovering/Resolving]
  - Endocarditis fibroplastica [Recovering/Resolving]
  - Tricuspid valve incompetence [Unknown]
  - Sinus tachycardia [Unknown]
  - Rash maculo-papular [Recovering/Resolving]
  - Thrombocytopenia [Unknown]
  - Right ventricular dilatation [Unknown]
